FAERS Safety Report 11427483 (Version 1)
Quarter: 2015Q3

REPORT INFORMATION
  Report Type: Spontaneous
  Country: US (occurrence: None)
  Receive Date: 20150826
  Receipt Date: 20150826
  Transmission Date: 20151125
  Serious: Yes (Other)
  Sender: FDA-Public Use
  Company Number: ADR-2015-00200

PATIENT
  Age: 23 Year
  Sex: Male

DRUGS (2)
  1. BACLOFEN  - 2000 MCG/ML [Suspect]
     Active Substance: BACLOFEN
     Indication: MUSCLE SPASTICITY
  2. ORAL BACLOFEN [Suspect]
     Active Substance: BACLOFEN
     Indication: MUSCLE SPASTICITY

REACTIONS (9)
  - Underdose [None]
  - Drug effect decreased [None]
  - Condition aggravated [None]
  - Paradoxical drug reaction [None]
  - Pruritus [None]
  - Device dislocation [None]
  - Muscle spasticity [None]
  - Device inversion [None]
  - Medical device complication [None]
